FAERS Safety Report 8810922 (Version 1)
Quarter: 2012Q4

REPORT INFORMATION
  Report Type: 
  Country: US (occurrence: US)
  Receive Date: 20120927
  Receipt Date: 20120927
  Transmission Date: 20130627
  Serious: Yes (Other)
  Sender: FDA-Public Use
  Company Number: US-MYLANLABS-2012S1015402

PATIENT
  Sex: Female

DRUGS (8)
  1. ALENDRONATE SODIUM [Suspect]
     Indication: OSTEOPOROSIS
     Dates: end: 201010
  2. ALENDRONATE SODIUM [Suspect]
     Indication: OSTEOPOROSIS PROPHYLAXIS
     Dates: end: 201010
  3. ALENDRONATE SODIUM [Suspect]
     Indication: OSTEOPENIA
     Dates: end: 201010
  4. ALENDRONATE SODIUM [Suspect]
     Indication: PROPHYLAXIS
     Dates: end: 201010
  5. FOSAMAX [Suspect]
     Indication: OSTEOPOROSIS
     Dates: end: 201010
  6. FOSAMAX [Suspect]
     Indication: OSTEOPOROSIS PROPHYLAXIS
     Dates: end: 201010
  7. FOSAMAX [Suspect]
     Indication: OSTEOPENIA
     Dates: end: 201010
  8. FOSAMAX [Suspect]
     Indication: PROPHYLAXIS
     Dates: end: 201010

REACTIONS (1)
  - Femur fracture [Unknown]
